FAERS Safety Report 4395085-5 (Version None)
Quarter: 2004Q3

REPORT INFORMATION
  Report Type: 
  Country: None (occurrence: None)
  Receive Date: 20040706
  Receipt Date: 20040623
  Transmission Date: 20050211
  Serious: Yes (Death)
  Sender: FDA-Public Use
  Company Number: USA-2004-0015754

PATIENT
  Age: 26 Year
  Sex: Female

DRUGS (4)
  1. OXYCONTIN [Suspect]
     Indication: PAIN
     Dosage: 80 MG, Q12H
     Dates: start: 20010101
  2. METHADONE HCL [Concomitant]
  3. SOMA [Concomitant]
  4. VALIUM [Concomitant]

REACTIONS (3)
  - ACUTE RESPIRATORY FAILURE [None]
  - ASTHMA [None]
  - RESPIRATORY ARREST [None]
